FAERS Safety Report 19073203 (Version 5)
Quarter: 2022Q2

REPORT INFORMATION
  Report Type: Report from Study
  Country: ES (occurrence: None)
  Receive Date: 20210330
  Receipt Date: 20220624
  Transmission Date: 20220721
  Serious: Yes (Death, Hospitalization)
  Sender: FDA-Public Use
  Company Number: ES-ROCHE-2791779

PATIENT
  Age: 58 Year
  Sex: Female

DRUGS (154)
  1. ATEZOLIZUMAB [Suspect]
     Active Substance: ATEZOLIZUMAB
     Indication: Small cell lung cancer
     Dosage: DATE OF LAST DOSE RECEIVED: 02/FEB/2021 AT 13:48
     Route: 041
     Dates: start: 20200930
  2. CARBOPLATIN [Suspect]
     Active Substance: CARBOPLATIN
     Indication: Small cell lung cancer
     Dosage: AUC OF 5 MG/ML/MIN?DATE OF LAST DOSE RECEIVED: 11/JAN/2021 AT 15:00, 470 MG
     Route: 042
     Dates: start: 20200930
  3. ETOPOSIDE [Suspect]
     Active Substance: ETOPOSIDE
     Indication: Small cell lung cancer
     Dosage: DATE OF LAST DOSE RECEIVED: 13/JAN/2021 AT 09:46, 140 MG
     Route: 042
     Dates: start: 20200930
  4. MORPHINE [Concomitant]
     Active Substance: MORPHINE
     Indication: Back pain
     Route: 048
     Dates: start: 20200925, end: 20210208
  5. MORPHINE [Concomitant]
     Active Substance: MORPHINE
     Route: 048
     Dates: start: 20200925, end: 20210220
  6. MORPHINE [Concomitant]
     Active Substance: MORPHINE
     Dosage: AS NEEDED
     Route: 058
     Dates: start: 20210223, end: 20210226
  7. MORPHINE [Concomitant]
     Active Substance: MORPHINE
     Route: 042
     Dates: start: 20210405, end: 20210406
  8. TORSEMIDE [Concomitant]
     Active Substance: TORSEMIDE
     Indication: Hypertension
     Dates: start: 20200925, end: 20210208
  9. METHYLPREDNISOLONE [Concomitant]
     Active Substance: METHYLPREDNISOLONE
     Indication: Rash
     Route: 061
     Dates: start: 20210217
  10. METHYLPREDNISOLONE [Concomitant]
     Active Substance: METHYLPREDNISOLONE
     Route: 042
     Dates: start: 20210221, end: 20210224
  11. POLARAMINE [Concomitant]
     Active Substance: DEXCHLORPHENIRAMINE MALEATE
     Indication: Rash
     Route: 048
     Dates: start: 20200925, end: 20201118
  12. APREPITANT [Concomitant]
     Active Substance: APREPITANT
     Route: 048
     Dates: start: 20200930, end: 20200930
  13. APREPITANT [Concomitant]
     Active Substance: APREPITANT
     Route: 048
     Dates: start: 20201001, end: 20201001
  14. APREPITANT [Concomitant]
     Active Substance: APREPITANT
     Route: 048
     Dates: start: 20201002, end: 20201002
  15. APREPITANT [Concomitant]
     Active Substance: APREPITANT
     Route: 048
     Dates: start: 20201020, end: 20201020
  16. APREPITANT [Concomitant]
     Active Substance: APREPITANT
     Route: 048
     Dates: start: 20201021, end: 20201021
  17. APREPITANT [Concomitant]
     Active Substance: APREPITANT
     Route: 048
     Dates: start: 20201022, end: 20201022
  18. APREPITANT [Concomitant]
     Active Substance: APREPITANT
     Route: 048
     Dates: start: 20201111, end: 20201111
  19. APREPITANT [Concomitant]
     Active Substance: APREPITANT
     Route: 048
     Dates: start: 20201112, end: 20201112
  20. APREPITANT [Concomitant]
     Active Substance: APREPITANT
     Route: 048
     Dates: start: 20201113, end: 20201113
  21. APREPITANT [Concomitant]
     Active Substance: APREPITANT
     Route: 048
     Dates: start: 20201201, end: 20201201
  22. APREPITANT [Concomitant]
     Active Substance: APREPITANT
     Route: 048
     Dates: start: 20201202, end: 20201202
  23. APREPITANT [Concomitant]
     Active Substance: APREPITANT
     Route: 048
     Dates: start: 20201203, end: 20201203
  24. APREPITANT [Concomitant]
     Active Substance: APREPITANT
     Route: 048
     Dates: start: 20201221, end: 20201221
  25. APREPITANT [Concomitant]
     Active Substance: APREPITANT
     Route: 048
     Dates: start: 20201222, end: 20201222
  26. APREPITANT [Concomitant]
     Active Substance: APREPITANT
     Route: 048
     Dates: start: 20201223, end: 20201223
  27. APREPITANT [Concomitant]
     Active Substance: APREPITANT
     Route: 048
     Dates: start: 20210111, end: 20210111
  28. APREPITANT [Concomitant]
     Active Substance: APREPITANT
     Route: 048
     Dates: start: 20210112, end: 20210112
  29. APREPITANT [Concomitant]
     Active Substance: APREPITANT
     Route: 048
     Dates: start: 20210113, end: 20210113
  30. DEXAMETHASONE [Concomitant]
     Active Substance: DEXAMETHASONE
     Route: 042
     Dates: start: 20200930, end: 20200930
  31. DEXAMETHASONE [Concomitant]
     Active Substance: DEXAMETHASONE
     Route: 042
     Dates: start: 20201001, end: 20201001
  32. DEXAMETHASONE [Concomitant]
     Active Substance: DEXAMETHASONE
     Route: 042
     Dates: start: 20201002, end: 20201002
  33. DEXAMETHASONE [Concomitant]
     Active Substance: DEXAMETHASONE
     Route: 042
     Dates: start: 20201020, end: 20201020
  34. DEXAMETHASONE [Concomitant]
     Active Substance: DEXAMETHASONE
     Route: 042
     Dates: start: 20201021, end: 20201021
  35. DEXAMETHASONE [Concomitant]
     Active Substance: DEXAMETHASONE
     Route: 042
     Dates: start: 20201022, end: 20201022
  36. DEXAMETHASONE [Concomitant]
     Active Substance: DEXAMETHASONE
     Route: 042
     Dates: start: 20201111, end: 20201111
  37. DEXAMETHASONE [Concomitant]
     Active Substance: DEXAMETHASONE
     Route: 042
     Dates: start: 20201201, end: 20201201
  38. DEXAMETHASONE [Concomitant]
     Active Substance: DEXAMETHASONE
     Route: 042
     Dates: start: 20201112, end: 20201112
  39. DEXAMETHASONE [Concomitant]
     Active Substance: DEXAMETHASONE
     Route: 042
     Dates: start: 20201113, end: 20201113
  40. DEXAMETHASONE [Concomitant]
     Active Substance: DEXAMETHASONE
     Route: 042
     Dates: start: 20201202, end: 20201202
  41. DEXAMETHASONE [Concomitant]
     Active Substance: DEXAMETHASONE
     Route: 042
     Dates: start: 20201203, end: 20201203
  42. DEXAMETHASONE [Concomitant]
     Active Substance: DEXAMETHASONE
     Route: 042
     Dates: start: 20201221, end: 20201221
  43. DEXAMETHASONE [Concomitant]
     Active Substance: DEXAMETHASONE
     Route: 042
     Dates: start: 20201222, end: 20201222
  44. DEXAMETHASONE [Concomitant]
     Active Substance: DEXAMETHASONE
     Route: 042
     Dates: start: 20201223, end: 20201223
  45. DEXAMETHASONE [Concomitant]
     Active Substance: DEXAMETHASONE
     Route: 042
     Dates: start: 20210111, end: 20210111
  46. DEXAMETHASONE [Concomitant]
     Active Substance: DEXAMETHASONE
     Route: 042
     Dates: start: 20210112, end: 20210112
  47. DEXAMETHASONE [Concomitant]
     Active Substance: DEXAMETHASONE
     Route: 042
     Dates: start: 20210113, end: 20210113
  48. DEXAMETHASONE [Concomitant]
     Active Substance: DEXAMETHASONE
     Route: 042
     Dates: start: 20210224, end: 20210226
  49. RANITIDINE [Concomitant]
     Active Substance: RANITIDINE
     Route: 042
     Dates: start: 20200930, end: 20200930
  50. RANITIDINE [Concomitant]
     Active Substance: RANITIDINE
     Route: 042
     Dates: start: 20201001, end: 20201001
  51. RANITIDINE [Concomitant]
     Active Substance: RANITIDINE
     Route: 042
     Dates: start: 20201002, end: 20201002
  52. RANITIDINE [Concomitant]
     Active Substance: RANITIDINE
     Route: 042
     Dates: start: 20201020, end: 20201020
  53. RANITIDINE [Concomitant]
     Active Substance: RANITIDINE
     Route: 042
     Dates: start: 20201021, end: 20201021
  54. RANITIDINE [Concomitant]
     Active Substance: RANITIDINE
     Route: 042
     Dates: start: 20201022, end: 20201022
  55. RANITIDINE [Concomitant]
     Active Substance: RANITIDINE
     Route: 042
     Dates: start: 20201111, end: 20201111
  56. RANITIDINE [Concomitant]
     Active Substance: RANITIDINE
     Route: 042
     Dates: start: 20201112, end: 20201112
  57. RANITIDINE [Concomitant]
     Active Substance: RANITIDINE
     Route: 042
     Dates: start: 20201113, end: 20201113
  58. RANITIDINE [Concomitant]
     Active Substance: RANITIDINE
     Route: 042
     Dates: start: 20201201, end: 20201201
  59. RANITIDINE [Concomitant]
     Active Substance: RANITIDINE
     Route: 042
     Dates: start: 20201202, end: 20201202
  60. RANITIDINE [Concomitant]
     Active Substance: RANITIDINE
     Route: 042
     Dates: start: 20201203, end: 20201203
  61. RANITIDINE [Concomitant]
     Active Substance: RANITIDINE
     Route: 042
     Dates: start: 20201221, end: 20201221
  62. RANITIDINE [Concomitant]
     Active Substance: RANITIDINE
     Route: 042
     Dates: start: 20201222, end: 20201222
  63. RANITIDINE [Concomitant]
     Active Substance: RANITIDINE
     Route: 042
     Dates: start: 20201223, end: 20201223
  64. RANITIDINE [Concomitant]
     Active Substance: RANITIDINE
     Route: 042
     Dates: start: 20210111, end: 20210111
  65. RANITIDINE [Concomitant]
     Active Substance: RANITIDINE
     Route: 042
     Dates: start: 20210112, end: 20210112
  66. RANITIDINE [Concomitant]
     Active Substance: RANITIDINE
     Route: 042
     Dates: start: 20210113, end: 20210113
  67. ONDANSETRON [Concomitant]
     Active Substance: ONDANSETRON
     Route: 042
     Dates: start: 20200930, end: 20200930
  68. ONDANSETRON [Concomitant]
     Active Substance: ONDANSETRON
     Route: 042
     Dates: start: 20201001, end: 20201001
  69. ONDANSETRON [Concomitant]
     Active Substance: ONDANSETRON
     Route: 042
     Dates: start: 20201002, end: 20201002
  70. ONDANSETRON [Concomitant]
     Active Substance: ONDANSETRON
     Route: 042
     Dates: start: 20201020, end: 20201020
  71. ONDANSETRON [Concomitant]
     Active Substance: ONDANSETRON
     Route: 042
     Dates: start: 20201021, end: 20201021
  72. ONDANSETRON [Concomitant]
     Active Substance: ONDANSETRON
     Route: 042
     Dates: start: 20201022, end: 20201022
  73. ONDANSETRON [Concomitant]
     Active Substance: ONDANSETRON
     Route: 042
     Dates: start: 20201111, end: 20201111
  74. ONDANSETRON [Concomitant]
     Active Substance: ONDANSETRON
     Route: 042
     Dates: start: 20201112, end: 20201112
  75. ONDANSETRON [Concomitant]
     Active Substance: ONDANSETRON
     Route: 042
     Dates: start: 20201113, end: 20201113
  76. ONDANSETRON [Concomitant]
     Active Substance: ONDANSETRON
     Route: 042
     Dates: start: 20210208, end: 20210208
  77. ONDANSETRON [Concomitant]
     Active Substance: ONDANSETRON
     Route: 048
     Dates: start: 20210208, end: 20210220
  78. ONDANSETRON [Concomitant]
     Active Substance: ONDANSETRON
     Route: 048
     Dates: start: 20210301
  79. ONDANSETRON [Concomitant]
     Active Substance: ONDANSETRON
     Route: 042
     Dates: start: 20201201, end: 20201201
  80. ONDANSETRON [Concomitant]
     Active Substance: ONDANSETRON
     Route: 042
     Dates: start: 20201202, end: 20201202
  81. ONDANSETRON [Concomitant]
     Active Substance: ONDANSETRON
     Route: 042
     Dates: start: 20201203, end: 20201203
  82. ONDANSETRON [Concomitant]
     Active Substance: ONDANSETRON
     Route: 042
     Dates: start: 20201221, end: 20201221
  83. ONDANSETRON [Concomitant]
     Active Substance: ONDANSETRON
     Route: 042
     Dates: start: 20201222, end: 20201222
  84. ONDANSETRON [Concomitant]
     Active Substance: ONDANSETRON
     Route: 042
     Dates: start: 20201223, end: 20201223
  85. ONDANSETRON [Concomitant]
     Active Substance: ONDANSETRON
     Route: 042
     Dates: start: 20210111, end: 20210111
  86. ONDANSETRON [Concomitant]
     Active Substance: ONDANSETRON
     Route: 042
     Dates: start: 20210112, end: 20210112
  87. ONDANSETRON [Concomitant]
     Active Substance: ONDANSETRON
     Dosage: NEXT DOSE: 08/FEB/2021
     Route: 042
     Dates: start: 20210113, end: 20210113
  88. ONDANSETRON [Concomitant]
     Active Substance: ONDANSETRON
     Route: 048
     Dates: start: 20210208, end: 20210220
  89. ONDANSETRON [Concomitant]
     Active Substance: ONDANSETRON
     Route: 048
     Dates: start: 20210301, end: 20210308
  90. ONDANSETRON [Concomitant]
     Active Substance: ONDANSETRON
     Route: 042
     Dates: start: 20210311, end: 20210404
  91. OMEPRAZOLE [Concomitant]
     Active Substance: OMEPRAZOLE
     Route: 042
     Dates: start: 20210208, end: 20210208
  92. OMEPRAZOLE [Concomitant]
     Active Substance: OMEPRAZOLE
     Route: 042
     Dates: start: 20210208, end: 20210220
  93. OMEPRAZOLE [Concomitant]
     Active Substance: OMEPRAZOLE
     Route: 042
     Dates: start: 20210221, end: 20210227
  94. OMEPRAZOLE [Concomitant]
     Active Substance: OMEPRAZOLE
     Route: 048
     Dates: start: 20210228, end: 20210308
  95. OMEPRAZOLE [Concomitant]
     Active Substance: OMEPRAZOLE
     Route: 042
     Dates: start: 20210301, end: 20210301
  96. OMEPRAZOLE [Concomitant]
     Active Substance: OMEPRAZOLE
     Route: 042
     Dates: start: 20210309, end: 20210401
  97. OMEPRAZOLE [Concomitant]
     Active Substance: OMEPRAZOLE
     Route: 048
     Dates: start: 20210402, end: 20210404
  98. SODIUM PHOSPHATE [Concomitant]
     Active Substance: SODIUM PHOSPHATE
     Dosage: PER RECTUM
     Dates: start: 20210215, end: 20210215
  99. SODIUM PHOSPHATE [Concomitant]
     Active Substance: SODIUM PHOSPHATE
     Dosage: PER RECTUM
     Dates: start: 20210221, end: 20210221
  100. SODIUM PHOSPHATE [Concomitant]
     Active Substance: SODIUM PHOSPHATE
     Dosage: PER RECTUM
     Dates: start: 20210224, end: 20210224
  101. SODIUM PHOSPHATE [Concomitant]
     Active Substance: SODIUM PHOSPHATE
     Dosage: PER RECTUM
     Dates: start: 20210301, end: 20210301
  102. LACTULOSE [Concomitant]
     Active Substance: LACTULOSE
     Route: 048
     Dates: start: 20210215
  103. DOMPERIDONE [Concomitant]
     Active Substance: DOMPERIDONE
     Route: 048
     Dates: start: 20210208, end: 20210220
  104. BISACODYL [Concomitant]
     Active Substance: BISACODYL
     Route: 048
     Dates: start: 20210208, end: 20210220
  105. BISACODYL [Concomitant]
     Active Substance: BISACODYL
     Route: 048
     Dates: start: 20210301, end: 20210308
  106. ACETAMINOPHEN [Concomitant]
     Active Substance: ACETAMINOPHEN
     Route: 048
     Dates: start: 20210208, end: 20210220
  107. ACETAMINOPHEN [Concomitant]
     Active Substance: ACETAMINOPHEN
     Route: 042
     Dates: start: 20210221, end: 20210227
  108. ACETAMINOPHEN [Concomitant]
     Active Substance: ACETAMINOPHEN
     Route: 042
     Dates: start: 20210227
  109. ACETAMINOPHEN [Concomitant]
     Active Substance: ACETAMINOPHEN
     Route: 042
     Dates: start: 20210301, end: 20210301
  110. ACETAMINOPHEN [Concomitant]
     Active Substance: ACETAMINOPHEN
     Route: 048
     Dates: start: 20210228, end: 20210308
  111. POTASSIUM [Concomitant]
     Active Substance: POTASSIUM
     Route: 048
  112. POTASSIUM [Concomitant]
     Active Substance: POTASSIUM
     Route: 048
     Dates: start: 20210228, end: 20210308
  113. POTASSIUM [Concomitant]
     Active Substance: POTASSIUM
     Route: 048
     Dates: start: 20210208, end: 20210220
  114. METOCLOPRAMIDE [Concomitant]
     Active Substance: METOCLOPRAMIDE
     Dosage: 1 MG/ML
     Route: 048
     Dates: start: 20201117, end: 20210221
  115. METOCLOPRAMIDE [Concomitant]
     Active Substance: METOCLOPRAMIDE
     Route: 042
     Dates: start: 20210222, end: 20210226
  116. METOCLOPRAMIDE [Concomitant]
     Active Substance: METOCLOPRAMIDE
     Route: 048
     Dates: start: 20210227, end: 20210308
  117. METOCLOPRAMIDE [Concomitant]
     Active Substance: METOCLOPRAMIDE
     Route: 042
     Dates: start: 20210309, end: 20210404
  118. BUTYLSCOPOLAMINE [Concomitant]
     Active Substance: BUTYLSCOPOLAMINE
     Route: 042
     Dates: start: 20210222, end: 20210222
  119. METAMIZOLE [Concomitant]
     Active Substance: METAMIZOLE
     Route: 042
     Dates: start: 20210222, end: 20210223
  120. METAMIZOLE [Concomitant]
     Active Substance: METAMIZOLE
     Route: 042
     Dates: start: 20210227, end: 20210227
  121. METAMIZOLE [Concomitant]
     Active Substance: METAMIZOLE
     Dosage: AS NEEDED
     Route: 048
     Dates: start: 20210228, end: 20210308
  122. ENOXAPARIN [Concomitant]
     Active Substance: ENOXAPARIN
     Route: 058
     Dates: start: 20210221, end: 20210226
  123. ENOXAPARIN [Concomitant]
     Active Substance: ENOXAPARIN
     Route: 058
     Dates: start: 20210309, end: 20210404
  124. LORAZEPAM [Concomitant]
     Active Substance: LORAZEPAM
     Dosage: AS NEEDED
     Route: 048
     Dates: start: 20210208, end: 20210308
  125. LORAZEPAM [Concomitant]
     Active Substance: LORAZEPAM
     Route: 042
     Dates: start: 20210317, end: 20210319
  126. FUROSEMIDE [Concomitant]
     Active Substance: FUROSEMIDE
     Route: 048
     Dates: start: 20210226, end: 20210227
  127. FUROSEMIDE [Concomitant]
     Active Substance: FUROSEMIDE
     Route: 042
     Dates: start: 20210325, end: 20210325
  128. DEXKETOPROFEN [Concomitant]
     Active Substance: DEXKETOPROFEN
     Route: 042
     Dates: start: 20210224, end: 20210226
  129. IBUPROFEN [Concomitant]
     Active Substance: IBUPROFEN
     Route: 048
     Dates: start: 20210226, end: 20210308
  130. DIAZEPAM [Concomitant]
     Active Substance: DIAZEPAM
     Route: 048
     Dates: start: 20210224
  131. DIAZEPAM [Concomitant]
     Active Substance: DIAZEPAM
     Route: 042
     Dates: start: 20210309, end: 20210315
  132. DIAZEPAM [Concomitant]
     Active Substance: DIAZEPAM
     Route: 042
     Dates: start: 20210316, end: 20210316
  133. DIAZEPAM [Concomitant]
     Active Substance: DIAZEPAM
     Route: 042
     Dates: start: 20210330, end: 20210405
  134. PIPERACILLIN AND TAZOBACTAM [Concomitant]
     Active Substance: PIPERACILLIN SODIUM\TAZOBACTAM SODIUM
     Route: 042
     Dates: start: 20210224, end: 20210226
  135. AMOXICILLIN [Concomitant]
     Active Substance: AMOXICILLIN
     Route: 042
     Dates: start: 20210226, end: 20210227
  136. AMOXICILLIN [Concomitant]
     Active Substance: AMOXICILLIN
     Route: 048
     Dates: start: 20210228, end: 20210305
  137. AMOXICILLIN [Concomitant]
     Active Substance: AMOXICILLIN
     Route: 048
     Dates: start: 202011, end: 202011
  138. CLAVULANIC ACID [Concomitant]
     Active Substance: CLAVULANIC ACID
     Route: 042
     Dates: start: 20210226, end: 20210227
  139. CLAVULANIC ACID [Concomitant]
     Active Substance: CLAVULANIC ACID
     Route: 048
     Dates: start: 20210228, end: 20210305
  140. ASCORBIC ACID [Concomitant]
     Active Substance: ASCORBIC ACID
     Route: 048
     Dates: start: 20210228, end: 20210308
  141. ALBUMIN HUMAN [Concomitant]
     Active Substance: ALBUMIN HUMAN
     Route: 042
     Dates: start: 20210225, end: 20210227
  142. PREDNISONE [Concomitant]
     Active Substance: PREDNISONE
     Route: 048
     Dates: start: 20210301
  143. PREDNISONE [Concomitant]
     Active Substance: PREDNISONE
     Route: 048
     Dates: start: 20210303
  144. PREDNISONE [Concomitant]
     Active Substance: PREDNISONE
     Route: 048
     Dates: start: 20210303, end: 20210308
  145. SIMETHICONE (DIMETHICONE) [Concomitant]
     Active Substance: DIMETHICONE
     Route: 048
     Dates: start: 20210301, end: 20210308
  146. ALPRAZOLAM [Concomitant]
     Active Substance: ALPRAZOLAM
     Route: 048
     Dates: start: 20210319, end: 20210330
  147. MIRTAZAPINE [Concomitant]
     Active Substance: MIRTAZAPINE
     Route: 048
     Dates: start: 20210330, end: 20210404
  148. TAZOBACTAM [Concomitant]
     Active Substance: TAZOBACTAM
     Route: 042
     Dates: start: 20210312, end: 20210321
  149. FENTANYL [Concomitant]
     Active Substance: FENTANYL
     Route: 042
     Dates: start: 20210310, end: 20210310
  150. KETAMINE [Concomitant]
     Active Substance: KETAMINE
     Indication: Anaesthesia
     Route: 042
     Dates: start: 20210310, end: 20210310
  151. PROPOFOL [Concomitant]
     Active Substance: PROPOFOL
     Indication: Anaesthesia
     Route: 042
     Dates: start: 20210404, end: 20210404
  152. ROCURONIUM BROMIDE [Concomitant]
     Active Substance: ROCURONIUM BROMIDE
     Indication: Anaesthesia
     Route: 042
     Dates: start: 20210404, end: 20210404
  153. SUCCINYLCHOLINE [Concomitant]
     Active Substance: SUCCINYLCHOLINE
     Indication: Anaesthesia
     Route: 042
     Dates: start: 20210404, end: 20210404
  154. SUGAMMADEX [Concomitant]
     Active Substance: SUGAMMADEX
     Indication: Anaesthesia
     Route: 042
     Dates: start: 20210404, end: 20210404

REACTIONS (1)
  - Intestinal obstruction [Fatal]

NARRATIVE: CASE EVENT DATE: 20210309
